FAERS Safety Report 9361707 (Version 3)
Quarter: 2013Q3

REPORT INFORMATION
  Report Type: Spontaneous
  Country: JP (occurrence: JP)
  Receive Date: 20130621
  Receipt Date: 20130923
  Transmission Date: 20140515
  Serious: Yes (Other)
  Sender: FDA-Public Use
  Company Number: PHHY2013JP063840

PATIENT
  Age: 83 Year
  Sex: Male

DRUGS (12)
  1. EXELON PATCH [Suspect]
     Indication: DEMENTIA ALZHEIMER^S TYPE
     Dosage: 18 MG, DAILY
     Route: 062
     Dates: end: 20130603
  2. EXELON PATCH [Suspect]
     Dosage: 4.5 MG, DAILY
     Route: 062
     Dates: start: 20130617
  3. PURSENID [Concomitant]
     Dosage: UNK
     Route: 048
  4. PURSENID [Concomitant]
     Dosage: UNK
     Route: 048
  5. AMLODIN [Concomitant]
     Dosage: 2.5 MG, UNK
     Route: 048
  6. AMLODIN [Concomitant]
     Dosage: 5 MG, UNK
     Route: 048
  7. MEVALOTIN [Concomitant]
     Dosage: 10 MG, UNK
     Route: 048
  8. MEVALOTIN [Concomitant]
     Dosage: 10 MG, UNK
     Route: 048
  9. MAGLAX [Concomitant]
     Dosage: 1500 MG, UNK
     Route: 048
  10. MAGLAX [Concomitant]
     Dosage: 1500 MG, UNK
     Route: 048
  11. MYSLEE [Concomitant]
     Dosage: 10 MG, UNK
     Route: 048
  12. MYSLEE [Concomitant]
     Dosage: 10 MG, UNK
     Route: 048

REACTIONS (3)
  - General physical health deterioration [Recovered/Resolved]
  - Duodenal ulcer [Recovered/Resolved]
  - Haematemesis [Recovered/Resolved]
